FAERS Safety Report 19058145 (Version 2)
Quarter: 2021Q2

REPORT INFORMATION
  Report Type: Spontaneous
  Country: CA (occurrence: CA)
  Receive Date: 20210324
  Receipt Date: 20210409
  Transmission Date: 20210717
  Serious: Yes (Hospitalization)
  Sender: FDA-Public Use
  Company Number: CA-BAXTER-2021BAX005403

PATIENT
  Sex: Female

DRUGS (2)
  1. 5?FLUOROURACIL [Suspect]
     Active Substance: FLUOROURACIL
     Indication: PRODUCT USED FOR UNKNOWN INDICATION
     Dosage: VIA INFUSOR LV5; DOSE ALSO MENTIONED AS 68 ML
     Route: 065
     Dates: start: 202103
  2. 5% DEXTROSE INJECTION [Suspect]
     Active Substance: DEXTROSE
     Indication: PRODUCT USED FOR UNKNOWN INDICATION
     Dosage: VIA INFUSOR LV5
     Route: 065
     Dates: start: 202103

REACTIONS (5)
  - Diarrhoea [Unknown]
  - Incorrect drug administration rate [Unknown]
  - Vomiting [Unknown]
  - Fatigue [Unknown]
  - Asthenia [Unknown]

NARRATIVE: CASE EVENT DATE: 202103
